FAERS Safety Report 8374855-2 (Version None)
Quarter: 2012Q2

REPORT INFORMATION
  Report Type: 
  Country: None (occurrence: None)
  Receive Date: 20120521
  Receipt Date: 20120508
  Transmission Date: 20120825
  Serious: No
  Sender: FDA-Public Use
  Company Number: US-ASTRAZENECA-2012SE17834

PATIENT
  Age: 46 Year
  Sex: Female

DRUGS (4)
  1. PREVACID [Concomitant]
  2. NEXIUM [Suspect]
     Route: 048
     Dates: start: 20120307
  3. NEXIUM [Suspect]
     Indication: GASTROOESOPHAGEAL REFLUX DISEASE
     Route: 048
     Dates: start: 20100519, end: 20120307
  4. PRILOSEC [Suspect]
     Route: 048

REACTIONS (10)
  - BACK DISORDER [None]
  - ARTHROPATHY [None]
  - CONTUSION [None]
  - HAEMATEMESIS [None]
  - DYSPHAGIA [None]
  - DYSPEPSIA [None]
  - WEIGHT DECREASED [None]
  - DRUG HYPERSENSITIVITY [None]
  - NAUSEA [None]
  - INTENTIONAL DRUG MISUSE [None]
